FAERS Safety Report 16635609 (Version 1)
Quarter: 2019Q3

REPORT INFORMATION
  Report Type: Spontaneous
  Country: ES (occurrence: ES)
  Receive Date: 20190726
  Receipt Date: 20190726
  Transmission Date: 20191004
  Serious: Yes (Life-Threatening)
  Sender: FDA-Public Use
  Company Number: ES-009507513-1907ESP012829

PATIENT
  Age: 54 Year
  Sex: Female

DRUGS (6)
  1. EUTIROX [Concomitant]
     Active Substance: LEVOTHYROXINE SODIUM
     Indication: HYPOTHYROIDISM
     Dosage: 75 MILLIGRAM, 48 HOURS, 100 TABLETS
     Route: 048
     Dates: start: 20170812
  2. EZETROL [Concomitant]
     Active Substance: EZETIMIBE
     Indication: HYPERLIPIDAEMIA
     Dosage: 10 MILLIGRAM, QD,28 TABLETS
     Route: 048
  3. EUTIROX [Concomitant]
     Active Substance: LEVOTHYROXINE SODIUM
     Indication: HYPOTHYROIDISM
     Dosage: 88 MILLIGRAM,48 HOURS,100 TABLETS
     Route: 048
     Dates: start: 20130514
  4. ALIROCUMAB [Concomitant]
     Active Substance: ALIROCUMAB
     Indication: HYPERLIPIDAEMIA
     Dosage: ALIROCUMAB 75MG INJECTABLE 1ML 2 PREFILLED SYRINGES, 14 DAYS
     Route: 058
     Dates: start: 20171018
  5. EZETROL 10 MG COMPRIMIDOS [Suspect]
     Active Substance: EZETIMIBE
     Indication: SCIATICA
     Dosage: 1 DOSAGE FORM, Q12H,28 TABLETS
     Route: 048
     Dates: start: 20180420, end: 20190701
  6. MONOLITUM [Concomitant]
     Active Substance: LANSOPRAZOLE
     Indication: DYSPEPSIA
     Dosage: UNK,GENERIC, 28 CAPSULES

REACTIONS (1)
  - Presyncope [Recovered/Resolved]

NARRATIVE: CASE EVENT DATE: 20190629
